FAERS Safety Report 11270504 (Version 1)
Quarter: 2015Q3

REPORT INFORMATION
  Report Type: Spontaneous
  Country: GB (occurrence: GB)
  Receive Date: 20150714
  Receipt Date: 20150714
  Transmission Date: 20151125
  Serious: Yes (Life-Threatening, Hospitalization)
  Sender: FDA-Public Use
  Company Number: GB-ELI_LILLY_AND_COMPANY-GB201507002911

PATIENT
  Age: 46 Year
  Sex: Male
  Weight: 62 kg

DRUGS (3)
  1. NITROFURANTOIN. [Suspect]
     Active Substance: NITROFURANTOIN
     Indication: PRODUCT USED FOR UNKNOWN INDICATION
     Dosage: 50 MG, UNKNOWN
     Route: 048
     Dates: start: 20150318, end: 20150318
  2. TADALAFIL [Suspect]
     Active Substance: TADALAFIL
     Indication: PRODUCT USED FOR UNKNOWN INDICATION
     Dosage: 10 MG, SINGLE
     Route: 042
     Dates: start: 20150318, end: 20150318
  3. TIAGABINE [Suspect]
     Active Substance: TIAGABINE
     Indication: PRODUCT USED FOR UNKNOWN INDICATION
     Dosage: 1 DF, UNKNOWN
     Route: 065
     Dates: start: 20150318, end: 20150318

REACTIONS (7)
  - Dizziness [Recovering/Resolving]
  - Amnesia [Recovering/Resolving]
  - Tachycardia [Recovering/Resolving]
  - Flushing [Recovering/Resolving]
  - Ventricular fibrillation [Recovering/Resolving]
  - Stevens-Johnson syndrome [Recovering/Resolving]
  - Hypotension [Recovering/Resolving]

NARRATIVE: CASE EVENT DATE: 20150318
